FAERS Safety Report 9100455 (Version 2)
Quarter: 2013Q1

REPORT INFORMATION
  Report Type: Spontaneous
  Country: IT (occurrence: IT)
  Receive Date: 20130215
  Receipt Date: 20130227
  Transmission Date: 20140127
  Serious: Yes (Other)
  Sender: FDA-Public Use
  Company Number: IT-PFIZER INC-2013057465

PATIENT
  Age: 72 Year
  Sex: Female

DRUGS (4)
  1. TRIATEC [Suspect]
     Indication: HYPERTENSION
     Dosage: UNK
     Route: 048
     Dates: start: 20060101
  2. ALDACTONE [Suspect]
     Indication: HYPERTENSION
     Dosage: UNK
     Route: 048
     Dates: start: 20121001, end: 20130118
  3. CARVEDILOL [Concomitant]
  4. URSODEOXYCHOLIC ACID [Concomitant]

REACTIONS (4)
  - Hyperkalaemia [Recovered/Resolved]
  - Dyspnoea [Recovered/Resolved]
  - Tachycardia [Recovered/Resolved]
  - Malaise [Recovered/Resolved]
